FAERS Safety Report 9256869 (Version 1)
Quarter: 2013Q2

REPORT INFORMATION
  Report Type: Spontaneous
  Country: US (occurrence: None)
  Receive Date: 20130423
  Receipt Date: 20130423
  Transmission Date: 20140414
  Serious: Yes (Life-Threatening, Hospitalization)
  Sender: FDA-Public Use
  Company Number: None

PATIENT
  Age: 35 Year
  Sex: Female
  Weight: 58.97 kg

DRUGS (1)
  1. MESOTHERAPY TREATMENT [Suspect]
     Indication: WEIGHT DECREASED
     Dates: start: 20050713, end: 20050724

REACTIONS (1)
  - Blood pressure decreased [None]
